FAERS Safety Report 5845163-6 (Version None)
Quarter: 2008Q3

REPORT INFORMATION
  Report Type: 
  Country: None (occurrence: None)
  Receive Date: 20080814
  Receipt Date: 20080805
  Transmission Date: 20090109
  Serious: Yes (Other)
  Sender: FDA-Public Use
  Company Number: PHEH2008US05280

PATIENT
  Sex: Female

DRUGS (1)
  1. RECLAST [Suspect]
     Indication: OSTEOPOROSIS
     Dosage: UNK
     Dates: start: 20080602

REACTIONS (18)
  - ASPIRATION BURSA [None]
  - BALANCE DISORDER [None]
  - BURSA DISORDER [None]
  - CONTUSION [None]
  - DIZZINESS [None]
  - ERYTHEMA [None]
  - FALL [None]
  - FOOT FRACTURE [None]
  - HAEMATOMA [None]
  - HEADACHE [None]
  - INDURATION [None]
  - JOINT SPRAIN [None]
  - JOINT SWELLING [None]
  - MUSCULOSKELETAL PAIN [None]
  - PAIN [None]
  - PAIN IN EXTREMITY [None]
  - TENDON PAIN [None]
  - VISION BLURRED [None]
